FAERS Safety Report 22238535 (Version 1)
Quarter: 2023Q2

REPORT INFORMATION
  Report Type: Spontaneous
  Country: US (occurrence: US)
  Receive Date: 20230421
  Receipt Date: 20230421
  Transmission Date: 20230722
  Serious: No
  Sender: FDA-Public Use
  Company Number: US-BRISTOL-MYERS SQUIBB COMPANY-2023-057310

PATIENT
  Age: 71 Year
  Sex: Female

DRUGS (2)
  1. LUSPATERCEPT [Suspect]
     Active Substance: LUSPATERCEPT
     Indication: Primary myelofibrosis
  2. RUXOLITINIB [Suspect]
     Active Substance: RUXOLITINIB
     Indication: Product used for unknown indication

REACTIONS (3)
  - Dizziness [Unknown]
  - Nausea [Unknown]
  - Off label use [Unknown]
